APPROVED DRUG PRODUCT: SODIUM BICARBONATE
Active Ingredient: SODIUM BICARBONATE
Strength: 2.5MEQ/5ML (0.5MEQ/ML)
Dosage Form/Route: SOLUTION;INTRAVENOUS
Application: A206688 | Product #001 | TE Code: AP
Applicant: FRESENIUS KABI USA LLC
Approved: Aug 25, 2025 | RLD: No | RS: No | Type: RX